FAERS Safety Report 20538766 (Version 1)
Quarter: 2022Q1

REPORT INFORMATION
  Report Type: Spontaneous
  Country: CN (occurrence: CN)
  Receive Date: 20220302
  Receipt Date: 20220302
  Transmission Date: 20220424
  Serious: Yes (Life-Threatening, Other)
  Sender: FDA-Public Use
  Company Number: CN-BAYER-2021-199883

PATIENT
  Age: 82 Year
  Sex: Female

DRUGS (6)
  1. XARELTO [Interacting]
     Active Substance: RIVAROXABAN
     Indication: Anticoagulant therapy
     Dosage: 10 MG, QD
     Route: 048
     Dates: start: 20210125, end: 20210128
  2. CLOPIDOGREL BISULFATE [Interacting]
     Active Substance: CLOPIDOGREL BISULFATE
     Indication: Platelet aggregation inhibition
     Dosage: 50 MG, QD
     Route: 048
     Dates: start: 20210124, end: 20210128
  3. HEPARIN SODIUM [Interacting]
     Active Substance: HEPARIN SODIUM
     Indication: Anticoagulant therapy
     Dosage: 1.25 IU, QD
     Route: 058
     Dates: start: 20210128, end: 20210207
  4. ENOXAPARIN SODIUM [Suspect]
     Active Substance: ENOXAPARIN SODIUM
     Indication: Anticoagulant therapy
     Dosage: 4000 IU, QD
     Dates: start: 20210204, end: 20210206
  5. ISOSORBIDE DINITRATE [Concomitant]
     Active Substance: ISOSORBIDE DINITRATE
     Indication: Cardiac dysfunction
     Dosage: 10 MG, TID
     Route: 048
     Dates: start: 20210127, end: 20210207
  6. AMINO ACIDS [Concomitant]
     Active Substance: AMINO ACIDS
     Indication: Chronic kidney disease
     Dosage: 4 DF, TID
     Route: 048
     Dates: start: 20210127, end: 20210204

REACTIONS (8)
  - Coagulation time prolonged [Recovering/Resolving]
  - Haematemesis [Unknown]
  - Epistaxis [Unknown]
  - Product monitoring error [Unknown]
  - Contraindicated product administered [Unknown]
  - Labelled drug-drug interaction medication error [Unknown]
  - Prescribed underdose [Unknown]
  - Underdose [Unknown]

NARRATIVE: CASE EVENT DATE: 20210125
